FAERS Safety Report 4912876-X (Version None)
Quarter: 2006Q1

REPORT INFORMATION
  Report Type: 
  Country: None (occurrence: None)
  Receive Date: 20060210
  Receipt Date: 20060126
  Transmission Date: 20060701
  Serious: Yes (Hospitalization)
  Sender: FDA-Public Use
  Company Number: B0306617A

PATIENT
  Age: 25 Year
  Sex: Female

DRUGS (5)
  1. AUGMENTIN '250' [Suspect]
     Dosage: ORAL
     Route: 048
     Dates: start: 20030204, end: 20030212
  2. AMPHOCYCLINE (AMPHOCYCLINE) [Suspect]
     Dosage: VAGINAL
     Route: 067
     Dates: start: 20030204, end: 20030212
  3. DOXYCYCLINE HYDROCHLORIDE (DOXYCYCLINE HYCLATE) [Suspect]
     Dosage: ORAL
     Route: 048
     Dates: start: 20030204, end: 20030212
  4. OMOCONAZOLE NITRATE (OMOCONAZOLE NITRATE) [Suspect]
     Dosage: TOPICAL
     Route: 061
     Dates: start: 20030204, end: 20030212
  5. CEPHALGAN POWDER (CEPHALGAN) [Suspect]
     Dosage: ORAL
     Route: 048
     Dates: start: 20030210, end: 20030210

REACTIONS (5)
  - BURNING SENSATION [None]
  - COUGH [None]
  - LARYNGEAL DISCOMFORT [None]
  - PRURITUS [None]
  - URTICARIA [None]
